FAERS Safety Report 6636947-5 (Version None)
Quarter: 2010Q1

REPORT INFORMATION
  Report Type: 
  Country: None (occurrence: None)
  Receive Date: 20100301
  Receipt Date: 20090811
  Transmission Date: 20100710
  Serious: Yes (Death)
  Sender: FDA-Public Use
  Company Number: 090814-0000911

PATIENT
  Age: 34 Year
  Sex: Female

DRUGS (5)
  1. DESOXYN [Suspect]
     Indication: DRUG USE FOR UNKNOWN INDICATION
  2. OPANA ER [Suspect]
     Indication: DRUG USE FOR UNKNOWN INDICATION
  3. CITALOPRAM HYDROBROMIDE [Suspect]
     Indication: DRUG USE FOR UNKNOWN INDICATION
  4. CAFFEINE [Concomitant]
  5. NICOTINE [Concomitant]

REACTIONS (2)
  - DRUG ABUSE [None]
  - MULTIPLE DRUG OVERDOSE [None]
